FAERS Safety Report 9070738 (Version 8)
Quarter: 2014Q1

REPORT INFORMATION
  Report Type: Report from Study
  Country: BR (occurrence: BR)
  Receive Date: 20130129
  Receipt Date: 20140123
  Transmission Date: 20141002
  Serious: Yes (Hospitalization, Other)
  Sender: FDA-Public Use
  Company Number: BR-ROCHE-1185002

PATIENT
  Age: 52 Year
  Sex: Female
  Weight: 67 kg

DRUGS (10)
  1. ACTEMRA [Suspect]
     Indication: RHEUMATOID ARTHRITIS
     Dosage: LAST INFUSION: 14/SEP/2012?MOST RECENT INFUSION ON 27/DEC/2013
     Route: 042
     Dates: start: 20110801, end: 201207
  2. RIVOTRIL [Concomitant]
     Route: 065
  3. DIPYRONE [Concomitant]
     Dosage: 2 TABLETS COMPRISING 1 MG.
     Route: 065
  4. TYLEX (BRAZIL) [Concomitant]
     Route: 065
  5. TANDRILAX [Concomitant]
     Indication: PAIN
  6. PREDNISONE [Concomitant]
     Indication: RHEUMATOID ARTHRITIS
  7. ISONIAZIDE [Concomitant]
     Indication: TUBERCULOSIS
  8. OMEPRAZOLE [Concomitant]
  9. NEOZINE [Concomitant]
     Route: 065
  10. GOLIMUMAB [Concomitant]
     Dosage: SYRINGE.
     Route: 065

REACTIONS (30)
  - Pneumonia [Recovered/Resolved]
  - Pleural effusion [Recovered/Resolved]
  - Haemorrhage [Recovered/Resolved]
  - Lung infection [Recovered/Resolved]
  - Tuberculosis [Unknown]
  - Fibromyalgia [Recovering/Resolving]
  - Malaise [Not Recovered/Not Resolved]
  - Somnolence [Unknown]
  - Swelling [Not Recovered/Not Resolved]
  - Pulmonary mass [Not Recovered/Not Resolved]
  - Traumatic lung injury [Unknown]
  - Pain in extremity [Unknown]
  - Arthralgia [Unknown]
  - Musculoskeletal disorder [Unknown]
  - Joint effusion [Unknown]
  - Weight increased [Unknown]
  - Rheumatoid nodule [Not Recovered/Not Resolved]
  - Gait disturbance [Not Recovered/Not Resolved]
  - Rheumatoid nodule [Not Recovered/Not Resolved]
  - Rheumatoid nodule [Not Recovered/Not Resolved]
  - Hand deformity [Unknown]
  - Foot deformity [Unknown]
  - Rheumatoid nodule [Not Recovered/Not Resolved]
  - Headache [Not Recovered/Not Resolved]
  - Pain [Not Recovered/Not Resolved]
  - Spleen disorder [Not Recovered/Not Resolved]
  - Myalgia [Recovered/Resolved]
  - Aspartate aminotransferase increased [Recovered/Resolved]
  - Alanine aminotransferase increased [Recovered/Resolved]
  - Rash erythematous [Recovering/Resolving]
